FAERS Safety Report 4804468-8 (Version None)
Quarter: 2005Q4

REPORT INFORMATION
  Report Type: 
  Country: None (occurrence: None)
  Receive Date: 20051017
  Receipt Date: 20051003
  Transmission Date: 20060501
  Serious: Yes (Life-Threatening, Hospitalization)
  Sender: FDA-Public Use
  Company Number: 2005132295

PATIENT
  Age: 33 Year
  Sex: Female
  Weight: 98 kg

DRUGS (2)
  1. FRAGMIN [Suspect]
     Indication: THROMBOSIS PROPHYLAXIS
     Dosage: 2500 I.U. (2500 I.U., 1 IN 1 D), SUBCUTANEOUS
     Route: 058
     Dates: start: 20050906, end: 20050908
  2. PROGESTERON (PROGESTERONE) [Concomitant]

REACTIONS (1)
  - PULMONARY EMBOLISM [None]
